FAERS Safety Report 11588701 (Version 1)
Quarter: 2015Q4

REPORT INFORMATION
  Report Type: Spontaneous
  Country: None (occurrence: None)
  Receive Date: 20151001
  Receipt Date: 20151001
  Transmission Date: 20160304
  Serious: No
  Sender: FDA-Public Use
  Company Number: None

PATIENT
  Age: 39 Year
  Sex: Male
  Weight: 95.26 kg

DRUGS (6)
  1. MULTIVITAMIN [Concomitant]
     Active Substance: VITAMINS
  2. TOPIRAMATE. [Concomitant]
     Active Substance: TOPIRAMATE
  3. BUPROPION. [Concomitant]
     Active Substance: BUPROPION
  4. HYDROXYZINE [Concomitant]
     Active Substance: HYDROXYZINE\HYDROXYZINE HYDROCHLORIDE
  5. PHENTERMINE 37.5 MG UNKNOWN PILL IS MARKED MP 273 [Suspect]
     Active Substance: PHENTERMINE
     Indication: WEIGHT DECREASED
     Route: 048
     Dates: start: 20150726, end: 20150930
  6. RESVERATROL [Concomitant]
     Active Substance: RESVERATROL

REACTIONS (3)
  - Drug ineffective [None]
  - Product quality issue [None]
  - Product substitution issue [None]

NARRATIVE: CASE EVENT DATE: 20150718
